FAERS Safety Report 5623069-5 (Version None)
Quarter: 2008Q1

REPORT INFORMATION
  Report Type: 
  Country: None (occurrence: None)
  Receive Date: 20080212
  Receipt Date: 20080211
  Transmission Date: 20080703
  Serious: Yes (Life-Threatening)
  Sender: FDA-Public Use
  Company Number: NZ-ASTRAZENECA-2008AP00914

PATIENT
  Age: 23886 Day
  Sex: Female

DRUGS (5)
  1. OMEPRAZOLE [Suspect]
     Indication: GASTROOESOPHAGEAL REFLUX DISEASE
     Route: 048
     Dates: start: 20070806, end: 20070808
  2. SIMVASTATIN [Concomitant]
     Indication: HYPERLIPIDAEMIA
     Route: 048
     Dates: start: 20040301
  3. FELODIPINE [Concomitant]
     Indication: ESSENTIAL HYPERTENSION
     Route: 048
     Dates: start: 20041201
  4. PAROXETINE HCL [Concomitant]
     Indication: DEPRESSION
     Route: 048
     Dates: start: 20040301
  5. BENDROFLUAZIDE [Concomitant]
     Indication: ESSENTIAL HYPERTENSION
     Route: 048
     Dates: start: 20070608

REACTIONS (3)
  - ANAPHYLACTIC SHOCK [None]
  - PHARYNGEAL OEDEMA [None]
  - TONGUE OEDEMA [None]
